FAERS Safety Report 13005929 (Version 1)
Quarter: 2016Q4

REPORT INFORMATION
  Report Type: Spontaneous
  Country: US (occurrence: US)
  Receive Date: 20161206
  Receipt Date: 20161206
  Transmission Date: 20170207
  Serious: No
  Sender: FDA-Public Use
  Company Number: None

PATIENT
  Age: 67 Year
  Sex: Male

DRUGS (2)
  1. OXYCODONE-ASPIRIN MAYNE PHAR [Suspect]
     Active Substance: ASPIRIN\OXYCODONE HYDROCHLORIDE
     Indication: BACK PAIN
     Route: 048
     Dates: start: 20161109, end: 20161206
  2. OXYCODONE-ASPIRIN MAYNE PHAR [Suspect]
     Active Substance: ASPIRIN\OXYCODONE HYDROCHLORIDE
     Indication: HEADACHE
     Route: 048
     Dates: start: 20161109, end: 20161206

REACTIONS (1)
  - Drug effect decreased [None]

NARRATIVE: CASE EVENT DATE: 20161206
